FAERS Safety Report 7037871-9 (Version None)
Quarter: 2010Q4

REPORT INFORMATION
  Report Type: 
  Country: None (occurrence: None)
  Receive Date: 20101011
  Receipt Date: 20101002
  Transmission Date: 20110411
  Serious: Yes (Other)
  Sender: FDA-Public Use
  Company Number: US-B.I. PHARMACEUTICALS,INC./RIDGEFIELD-2010-BP-11130BP

PATIENT
  Age: 46 Year
  Sex: Female

DRUGS (2)
  1. DULCOLAX [Suspect]
     Indication: CONSTIPATION
     Dosage: 10 MG
     Route: 054
     Dates: start: 20100704, end: 20100704
  2. DULCOLAX [Suspect]
     Dosage: 10 MG
     Route: 054
     Dates: start: 20101002, end: 20101002

REACTIONS (4)
  - BREAST CANCER [None]
  - CONSTIPATION [None]
  - PYREXIA [None]
  - VOMITING [None]
